FAERS Safety Report 17802306 (Version 1)
Quarter: 2020Q2

REPORT INFORMATION
  Report Type: Spontaneous
  Country: US (occurrence: US)
  Receive Date: 20200519
  Receipt Date: 20200519
  Transmission Date: 20200714
  Serious: No
  Sender: FDA-Public Use
  Company Number: US-NOVEN PHARMACEUTICALS, INC.-US2019000307

PATIENT

DRUGS (3)
  1. DAYTRANA [Suspect]
     Active Substance: METHYLPHENIDATE
     Indication: ATTENTION DEFICIT HYPERACTIVITY DISORDER
     Dosage: 10 MG, QD
     Route: 062
     Dates: start: 201904, end: 201905
  2. CLARITIN [Concomitant]
     Active Substance: LORATADINE
     Indication: HYPERSENSITIVITY
  3. DAYTRANA [Suspect]
     Active Substance: METHYLPHENIDATE
     Dosage: 15 MG, QD
     Route: 062
     Dates: start: 201905, end: 20190613

REACTIONS (7)
  - Product selection error [Recovered/Resolved]
  - Fatigue [Recovered/Resolved]
  - Product dose omission [Not Recovered/Not Resolved]
  - Change in sustained attention [Recovered/Resolved]
  - Confusional state [Recovered/Resolved]
  - Impatience [Recovered/Resolved]
  - Irritability [Recovered/Resolved]

NARRATIVE: CASE EVENT DATE: 201905
